FAERS Safety Report 6822165-4 (Version None)
Quarter: 2010Q3

REPORT INFORMATION
  Report Type: 
  Country: None (occurrence: None)
  Receive Date: 20100707
  Receipt Date: 20100707
  Transmission Date: 20110219
  Serious: Yes (Life-Threatening, Hospitalization)
  Sender: FDA-Public Use
  Company Number: None

PATIENT
  Age: 20 Year
  Sex: Male
  Weight: 79.3 kg

DRUGS (4)
  1. DOXYCYCLINE UNKNOWN UNKNOWN [Suspect]
     Indication: GENITAL SWELLING
  2. DOXYCYCLINE UNKNOWN UNKNOWN [Suspect]
     Indication: RESPIRATORY DISORDER
  3. DOXYCYCLINE UNKNOWN UNKNOWN [Suspect]
     Indication: SWELLING FACE
  4. CODEINE UNKNOWN UNKNOWN [Suspect]
     Indication: ABDOMINAL PAIN

REACTIONS (2)
  - DRUG HYPERSENSITIVITY [None]
  - STEVENS-JOHNSON SYNDROME [None]
